FAERS Safety Report 5468790-7 (Version None)
Quarter: 2007Q3

REPORT INFORMATION
  Report Type: 
  Country: None (occurrence: None)
  Receive Date: 20070926
  Receipt Date: 20070919
  Transmission Date: 20080115
  Serious: Yes (Hospitalization)
  Sender: FDA-Public Use
  Company Number: DE-ROXANE LABORATORIES, INC-2007-BP-21333RO

PATIENT
  Age: 70 Year
  Sex: Female

DRUGS (15)
  1. MIDAZOLAM HCL [Suspect]
     Indication: INDUCTION OF ANAESTHESIA
  2. ETOMIDATE [Suspect]
     Indication: INDUCTION OF ANAESTHESIA
  3. SUFENTANIL CITRATE [Suspect]
     Indication: INDUCTION OF ANAESTHESIA
  4. ROCURONIUM BROMIDE [Suspect]
     Indication: INDUCTION OF ANAESTHESIA
  5. PROPOFOL [Suspect]
     Indication: MAINTENANCE OF ANAESTHESIA
  6. PROPOFOL [Suspect]
  7. CYCLOSPORINE [Concomitant]
  8. METHYLPREDNISOLONE [Concomitant]
  9. METOPROLOL [Concomitant]
  10. ENALAPRIL MALEATE [Concomitant]
  11. FUROSEMIDE [Concomitant]
  12. ASPIRIN [Concomitant]
  13. ALLOPURINOL [Concomitant]
  14. NADROPARIN [Concomitant]
     Indication: THROMBOSIS
     Route: 058
  15. GLYCEROL NITRATE [Concomitant]
     Indication: ANGINA PECTORIS
     Route: 060

REACTIONS (5)
  - BLOOD PRESSURE DIASTOLIC DECREASED [None]
  - BLOOD PRESSURE SYSTOLIC DECREASED [None]
  - CARDIOVASCULAR INSUFFICIENCY [None]
  - DELAYED RECOVERY FROM ANAESTHESIA [None]
  - TACHYCARDIA [None]
